FAERS Safety Report 8978062 (Version 1)
Quarter: 2012Q4

REPORT INFORMATION
  Report Type: 
  Country: US (occurrence: US)
  Receive Date: 20121221
  Receipt Date: 20121221
  Transmission Date: 20130627
  Serious: No
  Sender: FDA-Public Use
  Company Number: US-009507513-1212USA007882

PATIENT
  Sex: Male
  Weight: 104.31 kg

DRUGS (8)
  1. PEGINTRON [Suspect]
     Dosage: Pegintron redipen 150 microgram per 0.5 ml
     Route: 058
  2. RIBASPHERE [Suspect]
  3. METHADONE HYDROCHLORIDE [Concomitant]
  4. VISTARIL [Concomitant]
  5. CLONAZEPAM [Concomitant]
  6. WELLBUTRIN [Concomitant]
  7. IBU-TAB [Concomitant]
  8. VITAMINS (UNSPECIFIED) [Concomitant]

REACTIONS (1)
  - Influenza like illness [Unknown]
